FAERS Safety Report 12676148 (Version 2)
Quarter: 2016Q3

REPORT INFORMATION
  Report Type: Spontaneous
  Country: IT (occurrence: IT)
  Receive Date: 20160823
  Receipt Date: 20160829
  Transmission Date: 20161109
  Serious: Yes (Hospitalization)
  Sender: FDA-Public Use
  Company Number: PHHY2016IT108074

PATIENT
  Age: 80 Year
  Sex: Male
  Weight: 73 kg

DRUGS (4)
  1. GLIVEC [Suspect]
     Active Substance: IMATINIB MESYLATE
     Indication: CHRONIC MYELOID LEUKAEMIA
     Dosage: 400 MG, QD (DAILY)
     Route: 048
     Dates: start: 20160624, end: 20160714
  2. GLIVEC [Suspect]
     Active Substance: IMATINIB MESYLATE
     Dosage: UNK
     Route: 048
     Dates: start: 20160718
  3. ALLOPURINOL. [Suspect]
     Active Substance: ALLOPURINOL
     Dosage: UNK
     Route: 048
     Dates: start: 20160718
  4. ALLOPURINOL. [Suspect]
     Active Substance: ALLOPURINOL
     Indication: HYPERURICAEMIA
     Dosage: 300 MG, QD
     Route: 048
     Dates: start: 20160617, end: 20160714

REACTIONS (3)
  - Dermatitis exfoliative [Recovered/Resolved]
  - Drug hypersensitivity [Recovered/Resolved]
  - Rash [Recovered/Resolved]

NARRATIVE: CASE EVENT DATE: 20160706
